FAERS Safety Report 16472968 (Version 6)
Quarter: 2020Q1

REPORT INFORMATION
  Report Type: Spontaneous
  Country: DE (occurrence: DE)
  Receive Date: 20190625
  Receipt Date: 20200219
  Transmission Date: 20200409
  Serious: Yes (Hospitalization)
  Sender: FDA-Public Use
  Company Number: PHHY2019DE134709

PATIENT
  Age: 63 Year
  Sex: Female

DRUGS (3)
  1. FAVISTAN [Concomitant]
     Active Substance: METHIMAZOLE
     Indication: PRODUCT USED FOR UNKNOWN INDICATION
     Dosage: 5 MG, WEEKLY
     Route: 065
  2. LATANOPROST. [Suspect]
     Active Substance: LATANOPROST
     Indication: GLAUCOMA
     Dosage: 1 OT, QD (1X/DAY)
     Route: 065
     Dates: start: 20190515
  3. LATANOPROST. [Suspect]
     Active Substance: LATANOPROST
     Indication: INTRAOCULAR PRESSURE INCREASED
     Dosage: 1 OT, QD
     Route: 065
     Dates: start: 20190528, end: 2019

REACTIONS (7)
  - Sensation of foreign body [Recovering/Resolving]
  - Lacrimation increased [Unknown]
  - Drug hypersensitivity [Not Recovered/Not Resolved]
  - Eye allergy [Not Recovered/Not Resolved]
  - Eye pain [Recovering/Resolving]
  - Pain [Not Recovered/Not Resolved]
  - Eye irritation [Recovered/Resolved]

NARRATIVE: CASE EVENT DATE: 20190516
